FAERS Safety Report 5059648-6 (Version None)
Quarter: 2006Q3

REPORT INFORMATION
  Report Type: 
  Country: None (occurrence: None)
  Receive Date: 20060724
  Receipt Date: 20060714
  Transmission Date: 20061208
  Serious: Yes (Other)
  Sender: FDA-Public Use
  Company Number: 2006AP03322

PATIENT
  Sex: Male

DRUGS (1)
  1. ANAPEINE [Suspect]
     Indication: ANAESTHESIA
     Route: 065

REACTIONS (2)
  - MYDRIASIS [None]
  - SHOCK [None]
